FAERS Safety Report 12167727 (Version 4)
Quarter: 2016Q2

REPORT INFORMATION
  Report Type: Spontaneous
  Country: FI (occurrence: FI)
  Receive Date: 20160310
  Receipt Date: 20160630
  Transmission Date: 20160815
  Serious: Yes (Death)
  Sender: FDA-Public Use
  Company Number: FI-JNJFOC-20160227302

PATIENT
  Age: 87 Year
  Sex: Female

DRUGS (9)
  1. DUROGESIC [Suspect]
     Active Substance: FENTANYL
     Indication: BACK PAIN
     Dosage: 50 UG/HR+12 UG/HR
     Route: 062
     Dates: start: 20151012, end: 20151012
  2. DUROGESIC [Suspect]
     Active Substance: FENTANYL
     Indication: OSTEOPOROSIS
     Dosage: 50 UG/HR+12 UG/HR
     Route: 062
     Dates: start: 20151012, end: 20151012
  3. GABAPENTIN. [Concomitant]
     Active Substance: GABAPENTIN
     Indication: BACK PAIN
     Route: 065
  4. DUROGESIC [Suspect]
     Active Substance: FENTANYL
     Indication: OSTEOPOROSIS
     Route: 062
     Dates: start: 201509
  5. DUROGESIC [Suspect]
     Active Substance: FENTANYL
     Indication: BACK PAIN
     Route: 062
     Dates: start: 201509
  6. CYMBALTA [Interacting]
     Active Substance: DULOXETINE HYDROCHLORIDE
     Indication: PAIN
     Route: 048
  7. PANADOL [Concomitant]
     Active Substance: ACETAMINOPHEN
     Indication: BACK PAIN
     Route: 065
  8. DUROGESIC [Suspect]
     Active Substance: FENTANYL
     Indication: OSTEOPOROSIS
     Dosage: 50 UG/HR+12 UG/HR
     Route: 062
     Dates: start: 20151015
  9. DUROGESIC [Suspect]
     Active Substance: FENTANYL
     Indication: BACK PAIN
     Dosage: 50 UG/HR+12 UG/HR
     Route: 062
     Dates: start: 20151015

REACTIONS (10)
  - Poor quality sleep [Unknown]
  - Pain [Unknown]
  - Delusion [Unknown]
  - Self-injurious ideation [Unknown]
  - Respiratory arrest [Fatal]
  - Poisoning [Unknown]
  - Wrong technique in product usage process [Unknown]
  - Confusional state [Unknown]
  - Product label issue [Unknown]
  - Drug interaction [Unknown]

NARRATIVE: CASE EVENT DATE: 201510
